FAERS Safety Report 20521250 (Version 1)
Quarter: 2022Q1

REPORT INFORMATION
  Report Type: Spontaneous
  Country: NL (occurrence: NL)
  Receive Date: 20220226
  Receipt Date: 20220226
  Transmission Date: 20220423
  Serious: Yes (Death)
  Sender: FDA-Public Use
  Company Number: None

PATIENT
  Age: 27 Year
  Sex: Female
  Weight: 50 kg

DRUGS (2)
  1. QUETIAPINE [Suspect]
     Active Substance: QUETIAPINE
     Indication: Sleep disorder
     Dosage: 25 MG, QD (EERST 25 MG) (MEDICINE PRESCRIBED BY DOCTOR: YES)
     Route: 065
     Dates: start: 20211201
  2. QUETIAPINE [Suspect]
     Active Substance: QUETIAPINE
     Dosage: 50 MG, QD (1 MAAL DAAGS)
     Route: 065

REACTIONS (3)
  - Apathy [Fatal]
  - Abnormal behaviour [Fatal]
  - Completed suicide [Fatal]

NARRATIVE: CASE EVENT DATE: 20211204
